FAERS Safety Report 9881489 (Version 1)
Quarter: 2014Q1

REPORT INFORMATION
  Report Type: Spontaneous
  Country: US (occurrence: US)
  Receive Date: 20140207
  Receipt Date: 20140207
  Transmission Date: 20141002
  Serious: No
  Sender: FDA-Public Use
  Company Number: US-009507513-1402USA002846

PATIENT
  Age: 32 Year
  Sex: Female

DRUGS (2)
  1. CLARITIN-D-24 [Suspect]
     Indication: RESPIRATORY TRACT CONGESTION
     Dosage: 10 MG, ONCE
     Route: 048
  2. CLARITIN-D-24 [Suspect]
     Indication: RHINALGIA

REACTIONS (7)
  - Nasal discomfort [Unknown]
  - Rhinitis [Unknown]
  - Throat irritation [Unknown]
  - Nasal dryness [Unknown]
  - Dry throat [Unknown]
  - Discomfort [Unknown]
  - Secretion discharge [Unknown]
